FAERS Safety Report 6250703-1 (Version None)
Quarter: 2009Q2

REPORT INFORMATION
  Report Type: 
  Country: None (occurrence: None)
  Receive Date: 20090630
  Receipt Date: 20090618
  Transmission Date: 20091009
  Serious: Yes (Other)
  Sender: FDA-Public Use
  Company Number: JP-PFIZER INC-2009225066

PATIENT
  Age: 49 Year

DRUGS (6)
  1. ZYVOX [Suspect]
     Indication: POST PROCEDURAL INFECTION
     Dosage: FREQUENCY: 2X/DAY,
     Route: 042
     Dates: start: 20090605
  2. ZYVOX [Suspect]
     Indication: WOUND INFECTION STAPHYLOCOCCAL
  3. LANDSEN [Concomitant]
  4. GABALON [Concomitant]
  5. TIZANIDINE HCL [Concomitant]
  6. ARTANE [Concomitant]

REACTIONS (4)
  - ANXIETY [None]
  - FEELING COLD [None]
  - HALLUCINATION [None]
  - SENSORY DISTURBANCE [None]
